FAERS Safety Report 9493834 (Version 2)
Quarter: 2013Q4

REPORT INFORMATION
  Report Type: Spontaneous
  Country: US (occurrence: US)
  Receive Date: 20130902
  Receipt Date: 20131106
  Transmission Date: 20140711
  Serious: Yes (Hospitalization, Other)
  Sender: FDA-Public Use
  Company Number: US-UCBSA-096523

PATIENT
  Age: 69 Year
  Sex: Male

DRUGS (12)
  1. VIMPAT [Suspect]
     Indication: CONVULSION
     Route: 048
  2. SABRIL [Suspect]
     Indication: COMPLEX PARTIAL SEIZURES
     Route: 048
  3. SABRIL [Suspect]
     Indication: COMPLEX PARTIAL SEIZURES
     Route: 048
  4. SABRIL [Suspect]
     Indication: COMPLEX PARTIAL SEIZURES
     Route: 048
  5. CEFEPIME [Suspect]
     Indication: URINARY TRACT INFECTION
     Dates: start: 2013, end: 2013
  6. CEFEPIME [Suspect]
     Indication: URINARY TRACT INFECTION
     Dates: start: 201304, end: 201304
  7. CLONAZEPAM [Concomitant]
     Dosage: 1.5 MG AT BEDTIME
  8. MELATONIN [Concomitant]
  9. METOPROLOL [Concomitant]
     Indication: SUPRAVENTRICULAR TACHYCARDIA
  10. VANCOMYCIN [Concomitant]
     Indication: URINARY TRACT INFECTION
     Route: 042
     Dates: start: 201302, end: 2013
  11. ZOSYN [Concomitant]
     Dates: start: 2013, end: 2013
  12. PROBIOTIC SUPPLEMENT [Concomitant]

REACTIONS (13)
  - Pneumonia [Recovered/Resolved]
  - Grand mal convulsion [Unknown]
  - Pneumonia aspiration [Unknown]
  - Respiratory failure [Unknown]
  - Sepsis [Unknown]
  - Dysphagia [Not Recovered/Not Resolved]
  - Supraventricular tachycardia [Unknown]
  - Urinary tract infection [Recovered/Resolved]
  - Encephalopathy [Recovered/Resolved]
  - Convulsion [Unknown]
  - Sedation [Unknown]
  - Mental status changes [Recovered/Resolved]
  - Overdose [Unknown]
